FAERS Safety Report 10606458 (Version 1)
Quarter: 2014Q4

REPORT INFORMATION
  Report Type: Spontaneous
  Country: SA (occurrence: None)
  Receive Date: 20141124
  Receipt Date: 20141124
  Transmission Date: 20150529
  Serious: Yes (Disabling)
  Sender: FDA-Public Use
  Company Number: None

PATIENT
  Age: 80 Year
  Sex: Female
  Weight: 62 kg

DRUGS (1)
  1. FOSAMAX [Suspect]
     Active Substance: ALENDRONATE SODIUM
     Indication: OSTEOPOROSIS
     Dosage: ONE TABLET/WEEK, ONCE WEEKLY, TAKEN BY MOUTH
     Route: 048
     Dates: start: 20141123, end: 20141124

REACTIONS (8)
  - Myalgia [None]
  - Pyrexia [None]
  - Pain in jaw [None]
  - Headache [None]
  - Eye pain [None]
  - Pain [None]
  - Chills [None]
  - Asthenia [None]

NARRATIVE: CASE EVENT DATE: 20141123
